FAERS Safety Report 16142130 (Version 1)
Quarter: 2019Q2

REPORT INFORMATION
  Report Type: Spontaneous
  Country: US (occurrence: US)
  Receive Date: 20190401
  Receipt Date: 20190401
  Transmission Date: 20190711
  Serious: No
  Sender: FDA-Public Use
  Company Number: US-SA-2019SA085447

PATIENT
  Age: 46 Year
  Sex: Male

DRUGS (1)
  1. DUPIXENT [Suspect]
     Active Substance: DUPILUMAB
     Dosage: 1 SYRINGE UNDER THE SKIN, QOW
     Dates: start: 20190310

REACTIONS (2)
  - Paraesthesia [Unknown]
  - Insomnia [Unknown]

NARRATIVE: CASE EVENT DATE: 20190310
